FAERS Safety Report 16420239 (Version 1)
Quarter: 2019Q2

REPORT INFORMATION
  Report Type: Spontaneous
  Country: US (occurrence: US)
  Receive Date: 20190612
  Receipt Date: 20190612
  Transmission Date: 20190711
  Serious: No
  Sender: FDA-Public Use
  Company Number: US-PFIZER INC-2019048700

PATIENT
  Age: 72 Year
  Sex: Female
  Weight: 68 kg

DRUGS (2)
  1. LYRICA [Suspect]
     Active Substance: PREGABALIN
     Indication: STENOSIS
     Dosage: 75 MG, TWICE A DAY AS NEEDED, SOMETIMES ONCE AT NIGHT
     Route: 048
  2. LYRICA [Suspect]
     Active Substance: PREGABALIN
     Indication: NERVE INJURY
     Dosage: 150 MG, DAILY
     Route: 048

REACTIONS (5)
  - Fall [Unknown]
  - Vision blurred [Unknown]
  - Off label use [Unknown]
  - Product use issue [Unknown]
  - Weight increased [Unknown]
